APPROVED DRUG PRODUCT: TORSEMIDE
Active Ingredient: TORSEMIDE
Strength: 5MG
Dosage Form/Route: TABLET;ORAL
Application: A079234 | Product #001 | TE Code: AB
Applicant: HETERO LABS LTD UNIT III
Approved: Jan 27, 2009 | RLD: No | RS: No | Type: RX